FAERS Safety Report 8181704-4 (Version None)
Quarter: 2012Q1

REPORT INFORMATION
  Report Type: 
  Country: None (occurrence: None)
  Receive Date: 20120302
  Receipt Date: 20110909
  Transmission Date: 20120608
  Serious: No
  Sender: FDA-Public Use
  Company Number: US-AMGEN-USASP2011046536

PATIENT
  Sex: Female
  Weight: 69.841 kg

DRUGS (4)
  1. NPLATE [Suspect]
     Indication: IDIOPATHIC THROMBOCYTOPENIC PURPURA
     Dosage: 2 MUG/KG, UNK
     Dates: start: 20110310, end: 20110318
  2. RITUXIMAB [Concomitant]
  3. PROMACTA [Concomitant]
     Dosage: 50 MG, QD
  4. PNEUMOVAX 23 [Concomitant]

REACTIONS (1)
  - DIZZINESS [None]
